FAERS Safety Report 6409168-9 (Version None)
Quarter: 2009Q4

REPORT INFORMATION
  Report Type: 
  Country: None (occurrence: None)
  Receive Date: 20091021
  Receipt Date: 20091013
  Transmission Date: 20100525
  Serious: Yes (Hospitalization)
  Sender: FDA-Public Use
  Company Number: PHHO2009NO10387

PATIENT
  Sex: Male
  Weight: 70 kg

DRUGS (2)
  1. RAD 666 RAD++PTR [Suspect]
     Indication: HEART TRANSPLANT
     Dosage: 1,25MG/DAY
     Route: 048
     Dates: start: 20071114
  2. NEORAL [Suspect]
     Indication: HEART TRANSPLANT
     Dosage: 100MG/DAY
     Route: 048
     Dates: start: 19941122

REACTIONS (4)
  - ARTERIAL THERAPEUTIC PROCEDURE [None]
  - CAROTID ARTERY STENOSIS [None]
  - ISCHAEMIC STROKE [None]
  - REHABILITATION THERAPY [None]
